FAERS Safety Report 5607612-8 (Version None)
Quarter: 2008Q1

REPORT INFORMATION
  Report Type: 
  Country: None (occurrence: None)
  Receive Date: 20080130
  Receipt Date: 20080122
  Transmission Date: 20080703
  Serious: Yes (Other)
  Sender: FDA-Public Use
  Company Number: PHBS2008CH01142

PATIENT
  Age: 71 Year
  Sex: Male

DRUGS (2)
  1. ZOMETA [Suspect]
     Indication: METASTASES TO BONE
     Dosage: 4 MG, QMO
     Route: 042
     Dates: start: 20060701, end: 20071001
  2. SUTENT [Concomitant]
     Route: 065

REACTIONS (5)
  - DENTAL CARIES [None]
  - DENTAL OPERATION [None]
  - OSTEONECROSIS [None]
  - RENAL CELL CARCINOMA [None]
  - SURGERY [None]
